FAERS Safety Report 11273913 (Version 1)
Quarter: 2015Q3

REPORT INFORMATION
  Report Type: Spontaneous
  Country: DE (occurrence: DE)
  Receive Date: 20150715
  Receipt Date: 20150715
  Transmission Date: 20151125
  Serious: Yes (Death, Other)
  Sender: FDA-Public Use
  Company Number: DE-TEVA-576995GER

PATIENT
  Age: 57 Year
  Sex: Female
  Weight: 103 kg

DRUGS (20)
  1. PIPERACILLIN/TAZOBACTAM [Concomitant]
     Active Substance: PIPERACILLIN SODIUM\TAZOBACTAM SODIUM
     Indication: THERAPEUTIC PROCEDURE
     Route: 042
  2. RANITIDIN [Concomitant]
     Active Substance: RANITIDINE HYDROCHLORIDE
     Indication: THERAPEUTIC PROCEDURE
     Route: 042
  3. SUFENTANIL [Concomitant]
     Active Substance: SUFENTANIL
     Indication: EMERGENCY CARE
     Route: 042
  4. NOREPINEPHRINE [Concomitant]
     Active Substance: NOREPINEPHRINE\NOREPINEPHRINE BITARTRATE
     Indication: EMERGENCY CARE
     Route: 042
  5. PANTOPRAZOLE SODIUM. [Concomitant]
     Active Substance: PANTOPRAZOLE SODIUM
     Route: 048
  6. LYRICA [Concomitant]
     Active Substance: PREGABALIN
     Route: 048
  7. INSULIN BASAL [Concomitant]
     Active Substance: INSULIN NOS
     Indication: TYPE 2 DIABETES MELLITUS
     Route: 058
  8. SALBUTAMOL [Concomitant]
     Active Substance: ALBUTEROL
     Indication: THERAPEUTIC PROCEDURE
     Route: 055
  9. ACETYLSALICYLSAEURE [Concomitant]
     Active Substance: ASPIRIN
     Route: 048
  10. CLEXANE [Concomitant]
     Active Substance: ENOXAPARIN SODIUM
     Indication: THERAPEUTIC PROCEDURE
     Route: 058
  11. TRAMAL LONG [Concomitant]
     Active Substance: TRAMADOL
     Route: 048
  12. SIMVASTATIN. [Concomitant]
     Active Substance: SIMVASTATIN
     Route: 048
  13. JANUVIA [Concomitant]
     Active Substance: SITAGLIPTIN PHOSPHATE
     Route: 048
  14. ATROVENT [Concomitant]
     Active Substance: IPRATROPIUM BROMIDE
     Indication: THERAPEUTIC PROCEDURE
     Route: 055
  15. ALLOPURINOL. [Concomitant]
     Active Substance: ALLOPURINOL
     Route: 048
  16. BISOPROLOL [Concomitant]
     Active Substance: BISOPROLOL
     Route: 048
  17. RAMIPRIL. [Suspect]
     Active Substance: RAMIPRIL
     Indication: HYPERTENSION
     Route: 048
  18. TORASEMID [Concomitant]
     Active Substance: TORSEMIDE
     Route: 048
  19. PROPOFOL. [Concomitant]
     Active Substance: PROPOFOL
     Indication: EMERGENCY CARE
     Route: 042
  20. NORADRENALIN [Concomitant]
     Active Substance: NOREPINEPHRINE\NOREPINEPHRINE BITARTRATE
     Indication: EMERGENCY CARE
     Route: 042

REACTIONS (4)
  - Cardiac arrest [Fatal]
  - Angioedema [Unknown]
  - Asphyxia [Unknown]
  - Brain injury [Unknown]

NARRATIVE: CASE EVENT DATE: 20150626
